FAERS Safety Report 9052805 (Version 1)
Quarter: 2013Q1

REPORT INFORMATION
  Report Type: Spontaneous
  Country: FR (occurrence: FR)
  Receive Date: 20130207
  Receipt Date: 20130207
  Transmission Date: 20140127
  Serious: Yes (Hospitalization)
  Sender: FDA-Public Use
  Company Number: FR-MYLANLABS-2013S1001949

PATIENT
  Age: 85 Year
  Sex: Male

DRUGS (2)
  1. CLOZAPINE [Suspect]
     Indication: DEMENTIA WITH LEWY BODIES
     Route: 048
     Dates: start: 20120917, end: 20121025
  2. CLOMIPRAMINE [Suspect]
     Indication: MEDICATION ERROR
     Route: 048
     Dates: start: 20121025, end: 20121203

REACTIONS (5)
  - Wrong drug administered [Recovered/Resolved]
  - Therapy cessation [Recovered/Resolved]
  - Agitation [Recovered/Resolved]
  - Myoclonus [Recovered/Resolved]
  - Anxiety [Recovered/Resolved]
